FAERS Safety Report 15468248 (Version 1)
Quarter: 2018Q4

REPORT INFORMATION
  Report Type: Report from Study
  Country: CO (occurrence: CO)
  Receive Date: 20181005
  Receipt Date: 20181005
  Transmission Date: 20190204
  Serious: Yes (Other)
  Sender: FDA-Public Use
  Company Number: PHHY2018CO088856

PATIENT
  Sex: Female
  Weight: 82 kg

DRUGS (2)
  1. TASIGNA [Suspect]
     Active Substance: NILOTINIB
     Indication: CHRONIC MYELOID LEUKAEMIA
     Dosage: 800 MG, QD
     Route: 048
     Dates: start: 20171007
  2. TASIGNA [Suspect]
     Active Substance: NILOTINIB
     Dosage: 200 MG, QD
     Route: 048

REACTIONS (9)
  - Product prescribing error [Unknown]
  - Brain neoplasm [Unknown]
  - Malaise [Unknown]
  - Dizziness [Unknown]
  - Ear pain [Unknown]
  - Headache [Unknown]
  - Visual impairment [Unknown]
  - Memory impairment [Unknown]
  - Inappropriate schedule of product administration [Unknown]
